FAERS Safety Report 23479120 (Version 1)
Quarter: 2024Q1

REPORT INFORMATION
  Report Type: Spontaneous
  Country: US (occurrence: US)
  Receive Date: 20240205
  Receipt Date: 20240205
  Transmission Date: 20240410
  Serious: No
  Sender: FDA-Public Use
  Company Number: US-002147023-NVSC2024US023729

PATIENT
  Sex: Male

DRUGS (1)
  1. LEQVIO [Suspect]
     Active Substance: INCLISIRAN SODIUM
     Indication: Arteriosclerosis
     Dosage: 284 MG/KG (INITIALLY, THEN AT 3 MONTHS, THEN EVERY 6 MONTHS THEREAFTER)
     Route: 058
     Dates: start: 20230227, end: 20230606

REACTIONS (1)
  - Low density lipoprotein increased [Unknown]
